FAERS Safety Report 5348670-8 (Version None)
Quarter: 2007Q2

REPORT INFORMATION
  Report Type: 
  Country: None (occurrence: None)
  Receive Date: 20070605
  Receipt Date: 20070521
  Transmission Date: 20071010
  Serious: Yes (Other)
  Sender: FDA-Public Use
  Company Number: 2007US-07582

PATIENT
  Age: 15 Year
  Sex: Female

DRUGS (2)
  1. ISOTRETINOIN [Suspect]
     Dosage: 40 MG, QD, ORAL
     Route: 048
     Dates: start: 20061130, end: 20061229
  2. ISOTRETINOIN [Suspect]
     Dosage: 40 MG, QD, ORAL
     Route: 048
     Dates: start: 20070220, end: 20070511

REACTIONS (2)
  - DRUG EXPOSURE DURING PREGNANCY [None]
  - UNINTENDED PREGNANCY [None]
